FAERS Safety Report 9551976 (Version 2)
Quarter: 2013Q4

REPORT INFORMATION
  Report Type: Report from Study
  Country: CA (occurrence: CA)
  Receive Date: 20130925
  Receipt Date: 20131210
  Transmission Date: 20140711
  Serious: Yes (Other)
  Sender: FDA-Public Use
  Company Number: CA-UCBSA-097822

PATIENT
  Age: 66 Year
  Sex: Female
  Weight: 52.2 kg

DRUGS (3)
  1. CIMZIA [Suspect]
     Indication: RHEUMATOID ARTHRITIS
     Route: 058
     Dates: start: 20130724, end: 201309
  2. CIMZIA [Suspect]
     Indication: RHEUMATOID ARTHRITIS
     Dosage: DOSE: 400 MG; WEEKS 0-2-4
     Route: 058
     Dates: start: 20130612, end: 20130710
  3. ACYCLOVIR [Concomitant]

REACTIONS (2)
  - Herpes zoster [Unknown]
  - Lung disorder [Not Recovered/Not Resolved]
